FAERS Safety Report 9337664 (Version 2)
Quarter: 2013Q3

REPORT INFORMATION
  Report Type: Report from Study
  Country: US (occurrence: US)
  Receive Date: 20130607
  Receipt Date: 20130927
  Transmission Date: 20140515
  Serious: Yes (Hospitalization)
  Sender: FDA-Public Use
  Company Number: US-PFIZER INC-2013164759

PATIENT
  Age: 76 Year
  Sex: Female
  Weight: 64.4 kg

DRUGS (2)
  1. INOTUZUMAB OZOGAMICIN [Suspect]
     Indication: ACUTE LYMPHOCYTIC LEUKAEMIA
     Dosage: 0.5 MG/M2, 1.8 MG/M^2/CYCLE
     Route: 042
     Dates: start: 20130201, end: 20130506
  2. METHOTREXATE SODIUM [Concomitant]
     Dosage: UNK
     Route: 037

REACTIONS (2)
  - Muscular weakness [Not Recovered/Not Resolved]
  - Neuropathy peripheral [Not Recovered/Not Resolved]
